FAERS Safety Report 8137723-7 (Version None)
Quarter: 2012Q1

REPORT INFORMATION
  Report Type: 
  Country: None (occurrence: None)
  Receive Date: 20120215
  Receipt Date: 20120213
  Transmission Date: 20120608
  Serious: No
  Sender: FDA-Public Use
  Company Number: US-PFIZER INC-2012038962

PATIENT
  Sex: Female
  Weight: 91.61 kg

DRUGS (4)
  1. LIPITOR [Suspect]
     Dosage: 5 MG, ONCE A DAY
     Route: 048
     Dates: start: 20120101
  2. LIPITOR [Suspect]
     Indication: BLOOD CHOLESTEROL INCREASED
     Dosage: 10 MG, ONCE A DAY
     Route: 048
     Dates: end: 20120101
  3. VITAMIN TAB [Concomitant]
     Dosage: UNK
  4. LIPITOR [Suspect]
     Dosage: UNK
     Route: 048

REACTIONS (3)
  - HEPATIC ENZYME INCREASED [None]
  - SINUSITIS [None]
  - MUSCULOSKELETAL PAIN [None]
